FAERS Safety Report 6387155-7 (Version None)
Quarter: 2009Q4

REPORT INFORMATION
  Report Type: 
  Country: None (occurrence: None)
  Receive Date: 20091002
  Receipt Date: 20090925
  Transmission Date: 20100525
  Serious: Yes (Other)
  Sender: FDA-Public Use
  Company Number: PHEH2009US00860

PATIENT
  Sex: Female

DRUGS (17)
  1. COMTAN [Interacting]
     Indication: PARKINSON'S DISEASE
     Dosage: UNK
     Route: 048
  2. SINEMET [Interacting]
     Indication: PARKINSON'S DISEASE
  3. RISPERIDONE [Interacting]
     Dosage: UNK
     Dates: start: 20081215, end: 20090104
  4. REQUIP [Suspect]
  5. AMITRIPTYLINE [Concomitant]
     Indication: DEPRESSION
     Dosage: 10 MG HS
     Route: 048
  6. ATENOLOL [Concomitant]
     Indication: HYPERTENSION
     Dosage: 25 MG, QD
     Route: 048
     Dates: start: 20081201, end: 20081229
  7. LEXAPRO [Concomitant]
     Indication: DEPRESSION
     Dosage: 20 MG AM AND 40 MG PM
     Route: 048
     Dates: start: 20081001, end: 20081229
  8. LEXAPRO [Concomitant]
     Indication: ANXIETY
  9. LISINOPRIL [Concomitant]
     Indication: BLOOD PRESSURE
     Dosage: 10 MG, QD
     Route: 048
  10. LISINOPRIL [Concomitant]
     Indication: CARDIAC DISORDER
  11. FOLIC ACID [Concomitant]
  12. XANAX [Concomitant]
     Indication: ANXIETY
     Dosage: 1 MG, TID
     Route: 048
  13. MORPHINE [Concomitant]
     Indication: PAIN
     Dosage: UNK
  14. PREVACID [Concomitant]
     Dosage: UNK
  15. MS CONTIN [Concomitant]
     Indication: PAIN
  16. TORSEMIDE [Concomitant]
     Dosage: UNK
  17. MIRALAX [Concomitant]
     Dosage: UNK

REACTIONS (11)
  - ABNORMAL BEHAVIOUR [None]
  - CONFUSIONAL STATE [None]
  - DRUG DISPENSING ERROR [None]
  - DRUG INTERACTION [None]
  - FATIGUE [None]
  - LETHARGY [None]
  - MEMORY IMPAIRMENT [None]
  - PARANOIA [None]
  - PHOTOPHOBIA [None]
  - SEDATION [None]
  - UNRESPONSIVE TO STIMULI [None]
